FAERS Safety Report 20466826 (Version 2)
Quarter: 2022Q2

REPORT INFORMATION
  Report Type: Spontaneous
  Country: DK (occurrence: DK)
  Receive Date: 20220214
  Receipt Date: 20220520
  Transmission Date: 20220721
  Serious: Yes (Death, Life-Threatening, Hospitalization, Other)
  Sender: FDA-Public Use
  Company Number: None

PATIENT
  Age: 6 Decade
  Sex: Male

DRUGS (6)
  1. DEXAMETHASONE [Suspect]
     Active Substance: DEXAMETHASONE
     Indication: COVID-19
     Dosage: 6 MILLIGRAM, UNKNOWN
     Route: 065
  2. AZATHIOPRINE [Suspect]
     Active Substance: AZATHIOPRINE
     Indication: Renal transplant
     Dosage: 50 MILLIGRAM PER DAY
     Route: 065
  3. SOLU-MEDROL [Suspect]
     Active Substance: METHYLPREDNISOLONE SODIUM SUCCINATE
     Indication: Renal transplant
     Dosage: 30 MILLIGRAM PER DAY
     Route: 065
  4. RITUXIMAB [Suspect]
     Active Substance: RITUXIMAB
     Indication: Post transplant lymphoproliferative disorder
     Dosage: UNK
     Route: 065
  5. RITUXIMAB [Suspect]
     Active Substance: RITUXIMAB
     Route: 065
  6. PFIZER-BIONTECH COVID-19 VACCINE [Suspect]
     Active Substance: TOZINAMERAN
     Indication: COVID-19 immunisation
     Dosage: UNK (SECOND DOSE)
     Route: 065

REACTIONS (14)
  - Respiratory distress [Fatal]
  - Hyperglycaemia [Fatal]
  - Respiratory failure [Fatal]
  - Acute kidney injury [Fatal]
  - Haemoptysis [Fatal]
  - Pulmonary necrosis [Fatal]
  - Pulmonary mucormycosis [Fatal]
  - COVID-19 [Fatal]
  - Septic shock [Fatal]
  - Mucormycosis [Fatal]
  - Vaccination failure [Fatal]
  - Cytomegalovirus infection [Unknown]
  - Bronchopulmonary aspergillosis [Unknown]
  - Off label use [Unknown]
